FAERS Safety Report 6810120-X (Version None)
Quarter: 2010Q2

REPORT INFORMATION
  Report Type: 
  Country: None (occurrence: None)
  Receive Date: 20100630
  Receipt Date: 20100624
  Transmission Date: 20101027
  Serious: Yes (Hospitalization)
  Sender: FDA-Public Use
  Company Number: CH-ROCHE-711551

PATIENT
  Age: 25 Year
  Sex: Female

DRUGS (1)
  1. ACTEMRA [Suspect]
     Route: 042
     Dates: start: 20090407

REACTIONS (2)
  - MULTIPLE SCLEROSIS [None]
  - PSYCHOTIC DISORDER [None]
